FAERS Safety Report 11491823 (Version 4)
Quarter: 2015Q4

REPORT INFORMATION
  Report Type: Spontaneous
  Country: JP (occurrence: JP)
  Receive Date: 20150910
  Receipt Date: 20151027
  Transmission Date: 20160304
  Serious: Yes (Death, Hospitalization, Other)
  Sender: FDA-Public Use
  Company Number: JP-ELI_LILLY_AND_COMPANY-JP201509000966

PATIENT
  Age: 86 Year
  Sex: Male

DRUGS (8)
  1. PANVITAN                           /07504101/ [Concomitant]
     Dosage: UNK
     Route: 048
     Dates: start: 20150731, end: 20150826
  2. TAKELDA [Concomitant]
     Indication: ANGINA PECTORIS
     Dosage: UNK DF, UNK
     Route: 048
  3. DIOVAN [Concomitant]
     Active Substance: VALSARTAN
     Indication: HYPERTENSION
     Dosage: UNK
  4. DIART [Concomitant]
     Active Substance: AZOSEMIDE
     Dosage: UNK
  5. ALIMTA [Suspect]
     Active Substance: PEMETREXED DISODIUM
     Indication: LUNG ADENOCARCINOMA RECURRENT
     Dosage: 600 MG, UNK
     Route: 042
     Dates: start: 20150812, end: 20150812
  6. ISALON [Concomitant]
     Active Substance: UNSPECIFIED INGREDIENT
     Dosage: UNK
  7. METHYCOBAL [Concomitant]
     Active Substance: METHYLCOBALAMIN
     Dosage: UNK
     Dates: start: 20150731, end: 20150731
  8. SELARA [Concomitant]
     Active Substance: EPLERENONE
     Indication: HYPERTENSION
     Dosage: UNK

REACTIONS (9)
  - Cardiac failure [Unknown]
  - Dyspnoea [Not Recovered/Not Resolved]
  - Interstitial lung disease [Fatal]
  - C-reactive protein increased [Unknown]
  - Blood beta-D-glucan increased [Unknown]
  - Pneumocystis jirovecii pneumonia [Fatal]
  - Oedema peripheral [Unknown]
  - Computerised tomogram thorax abnormal [Unknown]
  - Neutrophil count decreased [Unknown]

NARRATIVE: CASE EVENT DATE: 20150819
